FAERS Safety Report 4800156-2 (Version None)
Quarter: 2005Q4

REPORT INFORMATION
  Report Type: 
  Country: None (occurrence: None)
  Receive Date: 20051012
  Receipt Date: 20051012
  Transmission Date: 20060501
  Serious: No
  Sender: FDA-Public Use
  Company Number: None

PATIENT
  Sex: Male
  Weight: 62 kg

DRUGS (11)
  1. CYTARABINE [Suspect]
     Indication: ACUTE MYELOID LEUKAEMIA
     Dosage: SEE IMAGE
     Route: 042
     Dates: start: 20050830, end: 20050902
  2. IDARUBICIN HCL [Suspect]
     Dosage: SEE IMAGE
     Route: 042
     Dates: start: 20050830, end: 20050902
  3. ARA-C [Suspect]
     Dosage: SEE IMAGE
     Route: 042
     Dates: start: 20050830
  4. IDARUBICIN HCL [Suspect]
     Dosage: SEE IMAGE
     Route: 042
     Dates: start: 20050830
  5. ARA-C [Suspect]
     Dosage: SEE IMAGE
     Route: 042
     Dates: start: 20050830
  6. AMBISOME [Concomitant]
  7. AUGMENTIN '125' [Concomitant]
  8. K-DUR 10 [Concomitant]
  9. PROTONIX [Concomitant]
  10. VALTREX [Concomitant]
  11. VORICONAZOLE [Concomitant]

REACTIONS (1)
  - BLOOD POTASSIUM DECREASED [None]
